FAERS Safety Report 5566977-6 (Version None)
Quarter: 2007Q4

REPORT INFORMATION
  Report Type: 
  Country: None (occurrence: None)
  Receive Date: 20071219
  Receipt Date: 20070904
  Transmission Date: 20080405
  Serious: Yes (Other)
  Sender: FDA-Public Use
  Company Number: US-BRISTOL-MYERS SQUIBB COMPANY-13869243

PATIENT
  Age: 39 Year
  Sex: Female

DRUGS (1)
  1. PRAVACHOL [Suspect]
     Dates: start: 20050531, end: 20050606

REACTIONS (1)
  - DERMATOMYOSITIS [None]
